FAERS Safety Report 26211967 (Version 1)
Quarter: 2025Q4

REPORT INFORMATION
  Report Type: Spontaneous
  Country: EU (occurrence: EU)
  Receive Date: 20251230
  Receipt Date: 20251230
  Transmission Date: 20260117
  Serious: Yes (Life-Threatening)
  Sender: AMGEN
  Company Number: EU-GLAXOSMITHKLINE-FR2020GSK238061

PATIENT
  Age: 60 Year
  Sex: Female
  Weight: 81 kg

DRUGS (18)
  1. BEVACIZUMAB [Suspect]
     Active Substance: BEVACIZUMAB
     Indication: Ovarian cancer
     Dosage: 600 MG
     Route: 040
     Dates: start: 20190520
  2. BEVACIZUMAB [Suspect]
     Active Substance: BEVACIZUMAB
     Dosage: 500 MG
     Route: 040
     Dates: start: 20190702
  3. BEVACIZUMAB [Suspect]
     Active Substance: BEVACIZUMAB
     Dosage: 475 MG
     Route: 040
     Dates: start: 20200108
  4. BEVACIZUMAB [Suspect]
     Active Substance: BEVACIZUMAB
     Dosage: 500 MG
     Route: 040
     Dates: start: 20200324
  5. NIRAPARIB [Suspect]
     Active Substance: NIRAPARIB
     Indication: Ovarian cancer
     Dosage: UNK
     Route: 065
     Dates: start: 20191010
  6. DOSTARLIMAB [Suspect]
     Active Substance: DOSTARLIMAB
     Indication: Ovarian cancer
     Dosage: UNK
     Route: 065
     Dates: start: 20190612
  7. DOSTARLIMAB [Suspect]
     Active Substance: DOSTARLIMAB
     Dosage: UNK
     Route: 065
     Dates: start: 20191010
  8. CARBOPLATIN [Suspect]
     Active Substance: CARBOPLATIN
     Indication: Ovarian cancer
     Dosage: 570 MG
     Route: 040
     Dates: start: 20190520
  9. CARBOPLATIN [Suspect]
     Active Substance: CARBOPLATIN
     Dosage: 560 MG
     Route: 040
     Dates: start: 20190612
  10. CARBOPLATIN [Suspect]
     Active Substance: CARBOPLATIN
     Dosage: 540 MG
     Route: 040
     Dates: start: 20190702
  11. CARBOPLATIN [Suspect]
     Active Substance: CARBOPLATIN
     Dosage: 560 MG
     Route: 040
     Dates: start: 20190730
  12. CARBOPLATIN [Suspect]
     Active Substance: CARBOPLATIN
     Dosage: 490 MG
     Route: 040
     Dates: start: 20190828
  13. CARBOPLATIN [Suspect]
     Active Substance: CARBOPLATIN
     Dosage: 520 MG
     Route: 040
     Dates: start: 20190918
  14. PACLITAXEL [Suspect]
     Active Substance: PACLITAXEL
     Indication: Ovarian cancer
     Dosage: 324 MG
     Route: 040
     Dates: start: 20190520
  15. PACLITAXEL [Suspect]
     Active Substance: PACLITAXEL
     Dosage: 318 MG
     Route: 040
     Dates: start: 20190612
  16. PACLITAXEL [Suspect]
     Active Substance: PACLITAXEL
     Dosage: 312 MG
     Route: 040
     Dates: start: 20190702
  17. PACLITAXEL [Suspect]
     Active Substance: PACLITAXEL
     Dosage: 306 MG
     Route: 040
     Dates: start: 20190730
  18. DOXORUBICIN HYDROCHLORIDE [Concomitant]
     Active Substance: DOXORUBICIN HYDROCHLORIDE
     Indication: Ovarian cancer
     Dosage: 30 MG/M2, Z (EVERY 4 WEEKS)
     Route: 040
     Dates: start: 20200623

REACTIONS (1)
  - Myelodysplastic syndrome [Not Recovered/Not Resolved]

NARRATIVE: CASE EVENT DATE: 20201110
